FAERS Safety Report 10721972 (Version 1)
Quarter: 2015Q1

REPORT INFORMATION
  Report Type: Report from Study
  Country: US (occurrence: US)
  Receive Date: 20150119
  Receipt Date: 20150119
  Transmission Date: 20150721
  Serious: Yes (Other)
  Sender: FDA-Public Use
  Company Number: US-SA-2015SA004348

PATIENT
  Age: 63 Year
  Sex: Male
  Weight: 117.9 kg

DRUGS (3)
  1. LANTUS [Suspect]
     Active Substance: INSULIN GLARGINE
     Indication: TYPE 2 DIABETES MELLITUS
     Dosage: FREQUENCY:HS. DOSE:30 UNIT(S)
     Route: 065
     Dates: start: 1985
  2. NOVOLOG [Concomitant]
     Active Substance: INSULIN ASPART
     Dosage: DOSE: DURING DAY 6 UNITS WITH MEALS IF EATING
  3. NOVOLIN [Concomitant]
     Active Substance: INSULIN HUMAN
     Dosage: DOSE: DURING DAY 6 UNITS WITH MEALS IF EATING.

REACTIONS (7)
  - Fall [Unknown]
  - Dysarthria [Recovered/Resolved]
  - Loss of consciousness [Recovered/Resolved]
  - Hypertension [Recovered/Resolved]
  - Lower limb fracture [Recovered/Resolved]
  - Feeling abnormal [Recovered/Resolved]
  - Blood glucose decreased [Recovered/Resolved]

NARRATIVE: CASE EVENT DATE: 201408
